FAERS Safety Report 18419725 (Version 1)
Quarter: 2020Q4

REPORT INFORMATION
  Report Type: Spontaneous
  Country: US (occurrence: US)
  Receive Date: 20201023
  Receipt Date: 20201023
  Transmission Date: 20210114
  Serious: Yes (Other)
  Sender: FDA-Public Use
  Company Number: US-PFIZER INC-2020409045

PATIENT
  Age: 42 Year
  Sex: Female

DRUGS (4)
  1. METHYLPREDNISOLONE SODIUM SUCCINATE. [Suspect]
     Active Substance: METHYLPREDNISOLONE SODIUM SUCCINATE
     Indication: THROMBOTIC THROMBOCYTOPENIC PURPURA
     Dosage: 125 MG  (FIVE DOSES)
     Route: 042
  2. DDAVP [Suspect]
     Active Substance: DESMOPRESSIN ACETATE
     Indication: THROMBOTIC THROMBOCYTOPENIC PURPURA
     Dosage: 20 UG (20 MICROGRAMS IN 100 ML OF NORMAL SALINE INTRAVENOUSLY OVER ONE HOUR)
     Route: 042
  3. VINCRISTINE SULFATE. [Suspect]
     Active Substance: VINCRISTINE SULFATE
     Dosage: 2 MG
     Route: 042
  4. VINCRISTINE SULFATE. [Suspect]
     Active Substance: VINCRISTINE SULFATE
     Indication: THROMBOTIC THROMBOCYTOPENIC PURPURA
     Dosage: 2 MG (ONE DOSE)
     Route: 042

REACTIONS (5)
  - Condition aggravated [Recovered/Resolved]
  - Thrombotic thrombocytopenic purpura [Recovered/Resolved]
  - Off label use [Unknown]
  - Product use in unapproved indication [Unknown]
  - Drug effective for unapproved indication [Unknown]
